FAERS Safety Report 8999338 (Version 2)
Quarter: 2013Q1

REPORT INFORMATION
  Report Type: Spontaneous
  Country: KR (occurrence: KR)
  Receive Date: 20130103
  Receipt Date: 20130114
  Transmission Date: 20140127
  Serious: Yes (Hospitalization, Other)
  Sender: FDA-Public Use
  Company Number: KR-CELGENEUS-286-20785-12122525

PATIENT
  Age: 69 Year
  Sex: Male

DRUGS (2)
  1. THALOMID [Suspect]
     Indication: PLASMA CELL MYELOMA
     Route: 048
  2. DEXAMETHASONE [Concomitant]
     Indication: PLASMA CELL MYELOMA
     Route: 065

REACTIONS (4)
  - Compartment syndrome [Unknown]
  - Haemorrhagic diathesis [Recovered/Resolved]
  - Platelet aggregation decreased [Recovered/Resolved]
  - Muscle haemorrhage [Unknown]
